FAERS Safety Report 8389726-5 (Version None)
Quarter: 2012Q1

REPORT INFORMATION
  Report Type: 
  Country: None (occurrence: None)
  Receive Date: 20120323
  Receipt Date: 20110318
  Transmission Date: 20120608
  Serious: Yes (Hospitalization)
  Sender: FDA-Public Use
  Company Number: 163-21880-11032307

PATIENT
  Age: 83 Year
  Sex: Male

DRUGS (5)
  1. AMIODARONE HCL [Concomitant]
  2. REVLIMID [Suspect]
     Indication: ANAEMIA
     Dosage: 25 MG, 1 IN 1 D, PO
     Route: 048
     Dates: start: 20100824
  3. COREG (CARVEDILOL) (UNKNOWN) [Concomitant]
  4. FUROSEMIDE [Concomitant]
  5. WARFARIN SODIUM [Concomitant]

REACTIONS (2)
  - WHITE BLOOD CELL COUNT DECREASED [None]
  - PLATELET COUNT DECREASED [None]
